FAERS Safety Report 9614769 (Version 2)
Quarter: 2014Q1

REPORT INFORMATION
  Report Type: Report from Study
  Country: US (occurrence: US)
  Receive Date: 20131011
  Receipt Date: 20140304
  Transmission Date: 20141002
  Serious: Yes (Hospitalization, Other)
  Sender: FDA-Public Use
  Company Number: PHEH2013US021096

PATIENT
  Age: 24 Year
  Sex: Male
  Weight: 70 kg

DRUGS (4)
  1. MYFORTIC [Suspect]
     Indication: COMPLICATIONS OF TRANSPLANTED KIDNEY
     Dosage: 340 UKN, TID
     Route: 048
     Dates: start: 20111108
  2. MYFORTIC [Suspect]
     Indication: RENAL TRANSPLANT
  3. NEORAL [Concomitant]
     Indication: RENAL TRANSPLANT
     Dosage: 100 MG, BID
     Dates: start: 20111108
  4. PREDNISONE [Concomitant]
     Indication: RENAL TRANSPLANT
     Dosage: 10 MG, MORNING
     Route: 048
     Dates: start: 20111108

REACTIONS (7)
  - Malaise [Recovered/Resolved]
  - Renal failure acute [Recovered/Resolved]
  - Renal tubular necrosis [Recovered/Resolved]
  - Creatinine renal clearance abnormal [Recovered/Resolved]
  - Pyuria [Recovered/Resolved]
  - Pyrexia [Recovered/Resolved]
  - Headache [Recovered/Resolved]
